FAERS Safety Report 8676799 (Version 4)
Quarter: 2022Q2

REPORT INFORMATION
  Report Type: Report from Study
  Country: US (occurrence: US)
  Receive Date: 20120723
  Receipt Date: 20220401
  Transmission Date: 20220720
  Serious: Yes (Hospitalization, Other)
  Sender: FDA-Public Use
  Company Number: US-AMGEN-USASP2012044539

PATIENT
  Age: 74 Year
  Sex: Female

DRUGS (4)
  1. ENBREL [Suspect]
     Active Substance: ETANERCEPT
     Indication: Rheumatoid arthritis
     Dosage: 25 MG, QWK
     Route: 065
     Dates: start: 1990
  2. ENBREL [Suspect]
     Active Substance: ETANERCEPT
     Dosage: 25 UNK
     Route: 065
     Dates: start: 19980909
  3. ENBREL [Suspect]
     Active Substance: ETANERCEPT
     Dosage: 25 UNK
     Route: 065
     Dates: start: 19980909
  4. ENBREL [Suspect]
     Active Substance: ETANERCEPT
     Dosage: 25 MG, QWK
     Route: 065
     Dates: start: 19980909

REACTIONS (26)
  - Knee deformity [Recovered/Resolved]
  - Arthralgia [Not Recovered/Not Resolved]
  - Hand deformity [Recovered/Resolved]
  - Rheumatoid arthritis [Not Recovered/Not Resolved]
  - Thrombosis [Not Recovered/Not Resolved]
  - Pulmonary fibrosis [Not Recovered/Not Resolved]
  - Hyperhidrosis [Recovered/Resolved]
  - White blood cell count decreased [Unknown]
  - Rash [Recovered/Resolved]
  - Injection site pain [Unknown]
  - Bronchitis [Not Recovered/Not Resolved]
  - Herpes zoster [Recovered/Resolved]
  - Cough [Not Recovered/Not Resolved]
  - Insomnia [Not Recovered/Not Resolved]
  - Dysphonia [Not Recovered/Not Resolved]
  - Productive cough [Not Recovered/Not Resolved]
  - Pulmonary mass [Not Recovered/Not Resolved]
  - Muscle injury [Recovered/Resolved]
  - Animal scratch [Recovered/Resolved]
  - Neck pain [Not Recovered/Not Resolved]
  - Finger deformity [Unknown]
  - Foot deformity [Unknown]
  - Mobility decreased [Unknown]
  - Joint range of motion decreased [Unknown]
  - Product use issue [Unknown]
  - Pain [Not Recovered/Not Resolved]

NARRATIVE: CASE EVENT DATE: 20140101
